FAERS Safety Report 23723987 (Version 3)
Quarter: 2024Q2

REPORT INFORMATION
  Report Type: Spontaneous
  Country: CO (occurrence: CO)
  Receive Date: 20240409
  Receipt Date: 20240419
  Transmission Date: 20240716
  Serious: Yes (Death, Life-Threatening, Other)
  Sender: FDA-Public Use
  Company Number: CO-GLAXOSMITHKLINE-CO2024AMR041897

PATIENT

DRUGS (1)
  1. NIRAPARIB [Suspect]
     Active Substance: NIRAPARIB
     Indication: Ovarian cancer
     Dosage: 200 MG, QD

REACTIONS (8)
  - Near death experience [Unknown]
  - Death [Fatal]
  - Loss of consciousness [Not Recovered/Not Resolved]
  - Amnesia [Not Recovered/Not Resolved]
  - Muscle disorder [Not Recovered/Not Resolved]
  - Muscle twitching [Not Recovered/Not Resolved]
  - Dysphagia [Not Recovered/Not Resolved]
  - Platelet count decreased [Not Recovered/Not Resolved]

NARRATIVE: CASE EVENT DATE: 20240413
